FAERS Safety Report 11907184 (Version 3)
Quarter: 2016Q2

REPORT INFORMATION
  Report Type: Spontaneous
  Country: US (occurrence: US)
  Receive Date: 20160111
  Receipt Date: 20160616
  Transmission Date: 20160815
  Serious: Yes (Other)
  Sender: FDA-Public Use
  Company Number: US-TEVA-623662USA

PATIENT
  Sex: Female

DRUGS (1)
  1. VENLAFAXINE [Suspect]
     Active Substance: VENLAFAXINE HYDROCHLORIDE
     Indication: DEPRESSION
     Dosage: 300 MILLIGRAM DAILY;
     Route: 065
     Dates: start: 20140120

REACTIONS (5)
  - Mental impairment [Unknown]
  - Drug effect decreased [Unknown]
  - Activities of daily living impaired [Unknown]
  - Depression [Unknown]
  - Irritability [Unknown]

NARRATIVE: CASE EVENT DATE: 201401
